FAERS Safety Report 5846945-7 (Version None)
Quarter: 2008Q3

REPORT INFORMATION
  Report Type: 
  Country: None (occurrence: None)
  Receive Date: 20080815
  Receipt Date: 20080806
  Transmission Date: 20090109
  Serious: Yes (Other)
  Sender: FDA-Public Use
  Company Number: US-ELI_LILLY_AND_COMPANY-US200808001029

PATIENT
  Age: 39 Year
  Sex: Female

DRUGS (6)
  1. CYMBALTA [Suspect]
     Indication: NEURALGIA
     Dosage: 60 MG, UNK
     Dates: start: 20071101, end: 20080401
  2. CYMBALTA [Suspect]
     Dosage: 60 MG, UNK
     Dates: start: 20080401
  3. SYNTHROID [Concomitant]
  4. METOPROLOL [Concomitant]
     Indication: TACHYCARDIA
  5. OXYCONTIN [Concomitant]
     Dosage: 40 MG, DAILY (1/D)
  6. PERCOCET [Concomitant]

REACTIONS (8)
  - DISTURBANCE IN ATTENTION [None]
  - DRUG INEFFECTIVE [None]
  - DRUG WITHDRAWAL SYNDROME [None]
  - HYPERHIDROSIS [None]
  - KNEE ARTHROPLASTY [None]
  - PAIN [None]
  - PARAESTHESIA [None]
  - WEIGHT DECREASED [None]
